FAERS Safety Report 12733606 (Version 1)
Quarter: 2016Q3

REPORT INFORMATION
  Report Type: Spontaneous
  Country: US (occurrence: US)
  Receive Date: 20160912
  Receipt Date: 20160912
  Transmission Date: 20161109
  Serious: No
  Sender: FDA-Public Use
  Company Number: US-009507513-1608USA012068

PATIENT
  Age: 17 Year
  Sex: Female
  Weight: 134.69 kg

DRUGS (1)
  1. NEXPLANON [Suspect]
     Active Substance: ETONOGESTREL
     Dosage: DOSE/FREQUENCY: 68MG EVERY 3 YEARS
     Route: 059
     Dates: start: 20141017

REACTIONS (4)
  - Product quality issue [Unknown]
  - No adverse event [Unknown]
  - Device kink [Not Recovered/Not Resolved]
  - Device breakage [Not Recovered/Not Resolved]

NARRATIVE: CASE EVENT DATE: 20160426
